APPROVED DRUG PRODUCT: FLURBIPROFEN
Active Ingredient: FLURBIPROFEN
Strength: 100MG
Dosage Form/Route: TABLET;ORAL
Application: A074560 | Product #002
Applicant: THERAGEN INC
Approved: May 16, 1997 | RLD: No | RS: No | Type: DISCN